FAERS Safety Report 7772615-4 (Version None)
Quarter: 2011Q3

REPORT INFORMATION
  Report Type: 
  Country: None (occurrence: None)
  Receive Date: 20110922
  Receipt Date: 20100802
  Transmission Date: 20111222
  Serious: No
  Sender: FDA-Public Use
  Company Number: US-ASTRAZENECA-2010SE36073

PATIENT
  Age: 32 Year
  Sex: Male

DRUGS (5)
  1. SEROQUEL [Suspect]
     Indication: BIPOLAR DISORDER
     Dosage: 300 TO 400 MG DAILY
     Route: 048
     Dates: start: 20071101
  2. DEPAKOTE [Concomitant]
  3. SEROQUEL [Suspect]
     Route: 048
     Dates: start: 20100719
  4. SEROQUEL [Suspect]
     Indication: MANIA
     Dosage: 300 TO 400 MG DAILY
     Route: 048
     Dates: start: 20071101
  5. SEROQUEL [Suspect]
     Route: 048
     Dates: start: 20100719

REACTIONS (19)
  - DRY MOUTH [None]
  - DYSPHAGIA [None]
  - HALLUCINATION [None]
  - HYPERGLYCAEMIA [None]
  - DIABETES MELLITUS [None]
  - OROPHARYNGEAL PAIN [None]
  - AMBLYOPIA [None]
  - HEART RATE INCREASED [None]
  - HYPERTHYROIDISM [None]
  - CONSTIPATION [None]
  - ANXIETY [None]
  - ARRHYTHMIA [None]
  - APPETITE DISORDER [None]
  - ABNORMAL DREAMS [None]
  - WEIGHT INCREASED [None]
  - SKIN DISCOLOURATION [None]
  - HYPERHIDROSIS [None]
  - ADVERSE DRUG REACTION [None]
  - NIGHTMARE [None]
